FAERS Safety Report 5449973-9 (Version None)
Quarter: 2007Q3

REPORT INFORMATION
  Report Type: 
  Country: None (occurrence: None)
  Receive Date: 20070912
  Receipt Date: 20070831
  Transmission Date: 20080115
  Serious: Yes (Hospitalization)
  Sender: FDA-Public Use
  Company Number: FR-BAYER-200710483BFR

PATIENT
  Age: 19 Year
  Sex: Male

DRUGS (7)
  1. CIFLOX [Suspect]
     Indication: PSEUDOMONAS INFECTION
     Dosage: TOTAL DAILY DOSE: 800 MG  UNIT DOSE: 400 MG
     Route: 042
     Dates: start: 20070323, end: 20070408
  2. CIFLOX [Suspect]
     Dosage: TOTAL DAILY DOSE: 1 G  UNIT DOSE: 500 MG
     Route: 048
     Dates: start: 20070408, end: 20070413
  3. VANCOMYCIN [Suspect]
     Indication: STAPHYLOCOCCAL INFECTION
     Route: 042
     Dates: start: 20070323, end: 20070408
  4. DESLORATADINE [Concomitant]
     Indication: UNEVALUABLE EVENT
  5. LOXAPAC [Concomitant]
     Indication: UNEVALUABLE EVENT
  6. LOVENOX [Concomitant]
     Indication: UNEVALUABLE EVENT
  7. PERFALGAN [Concomitant]
     Indication: UNEVALUABLE EVENT

REACTIONS (4)
  - DRUG RASH WITH EOSINOPHILIA AND SYSTEMIC SYMPTOMS [None]
  - EOSINOPHILIA [None]
  - PYREXIA [None]
  - RASH SCARLATINIFORM [None]
